FAERS Safety Report 5620611-5 (Version None)
Quarter: 2008Q1

REPORT INFORMATION
  Report Type: 
  Country: None (occurrence: None)
  Receive Date: 20080208
  Receipt Date: 20080118
  Transmission Date: 20080703
  Serious: No
  Sender: FDA-Public Use
  Company Number: US-BAYER-200811681NA

PATIENT
  Age: 35 Year
  Sex: Female

DRUGS (3)
  1. AVELOX [Suspect]
     Indication: PNEUMONIA
     Dosage: TOTAL DAILY DOSE: 400 MG  UNIT DOSE: 400 MG
     Route: 048
     Dates: start: 20071201
  2. DECONGESTANT [Concomitant]
     Dates: start: 20071201
  3. NASAL SPRAY [Concomitant]
     Route: 045
     Dates: start: 20071201

REACTIONS (1)
  - DIZZINESS [None]
